FAERS Safety Report 8558394-1 (Version None)
Quarter: 2012Q3

REPORT INFORMATION
  Report Type: 
  Country: None (occurrence: None)
  Receive Date: 20120727
  Receipt Date: 20120727
  Transmission Date: 20120928
  Serious: Yes (Other)
  Sender: FDA-Public Use
  Company Number: None

PATIENT
  Sex: Female

DRUGS (1)
  1. ENBREL [Suspect]
     Indication: RHEUMATOID ARTHRITIS
     Dosage: 50MG QW SQ
     Route: 058
     Dates: start: 20111201, end: 20120706

REACTIONS (8)
  - CONJUNCTIVITIS INFECTIVE [None]
  - OPTIC NEURITIS [None]
  - EYE PAIN [None]
  - RETINAL INJURY [None]
  - NO THERAPEUTIC RESPONSE [None]
  - HEADACHE [None]
  - HORDEOLUM [None]
  - VISION BLURRED [None]
